FAERS Safety Report 21597975 (Version 1)
Quarter: 2022Q4

REPORT INFORMATION
  Report Type: Spontaneous
  Country: IN (occurrence: IN)
  Receive Date: 20221115
  Receipt Date: 20221115
  Transmission Date: 20230113
  Serious: Yes (Other)
  Sender: FDA-Public Use
  Company Number: IN-SA-2022SA446942

PATIENT
  Age: 27 Year
  Sex: Male

DRUGS (9)
  1. ENOXAPARIN SODIUM [Suspect]
     Active Substance: ENOXAPARIN SODIUM
     Indication: Vena cava thrombosis
     Dosage: 0.6 ML, BID
     Route: 042
  2. ENOXAPARIN SODIUM [Suspect]
     Active Substance: ENOXAPARIN SODIUM
     Indication: Deep vein thrombosis
  3. ENOXAPARIN SODIUM [Suspect]
     Active Substance: ENOXAPARIN SODIUM
     Indication: Pelvic venous thrombosis
  4. ENOXAPARIN SODIUM [Suspect]
     Active Substance: ENOXAPARIN SODIUM
     Indication: Deep vein thrombosis
  5. HEPARIN [Suspect]
     Active Substance: HEPARIN SODIUM
     Indication: Deep vein thrombosis
     Dosage: 500 IU /HOUR
  6. HEPARIN [Suspect]
     Active Substance: HEPARIN SODIUM
     Indication: Vena cava thrombosis
  7. HEPARIN [Suspect]
     Active Substance: HEPARIN SODIUM
     Indication: Pelvic venous thrombosis
  8. HEPARIN [Suspect]
     Active Substance: HEPARIN SODIUM
     Indication: Deep vein thrombosis
  9. UROKINASE [Concomitant]
     Active Substance: UROKINASE
     Dosage: 70000 IU, QH

REACTIONS (3)
  - Heparin-induced thrombocytopenia [Recovered/Resolved]
  - Vascular stent thrombosis [Recovered/Resolved]
  - Pelvic venous thrombosis [Recovered/Resolved]
